FAERS Safety Report 9657198 (Version 2)
Quarter: 2014Q1

REPORT INFORMATION
  Report Type: Spontaneous
  Country: US (occurrence: US)
  Receive Date: 20131030
  Receipt Date: 20140212
  Transmission Date: 20141002
  Serious: Yes (Hospitalization, Other)
  Sender: FDA-Public Use
  Company Number: US-BAYER-2013-130764

PATIENT
  Age: 19 Year
  Sex: Female
  Weight: 56.69 kg

DRUGS (3)
  1. MIRENA [Suspect]
     Indication: CONTRACEPTION
     Dosage: 20 MCG/24HR, CONT
     Route: 015
     Dates: start: 20081107, end: 20111129
  2. NORCO [Concomitant]
  3. NAPROSYN [Concomitant]
     Indication: ABDOMINAL PAIN

REACTIONS (6)
  - Uterine perforation [None]
  - Genital haemorrhage [None]
  - Medical device discomfort [None]
  - Emotional distress [None]
  - Pain [None]
  - Injury [None]
